FAERS Safety Report 7795362-1 (Version None)
Quarter: 2011Q4

REPORT INFORMATION
  Report Type: 
  Country: None (occurrence: None)
  Receive Date: 20111004
  Receipt Date: 20110926
  Transmission Date: 20120403
  Serious: Yes (Other)
  Sender: FDA-Public Use
  Company Number: JP-B.I. PHARMACEUTICALS,INC./RIDGEFIELD-2011-BP-21725NB

PATIENT
  Sex: Male
  Weight: 64 kg

DRUGS (9)
  1. FAMOTIDINE [Concomitant]
     Dosage: 10 MG
     Route: 048
     Dates: start: 20110601
  2. URALYT [Concomitant]
     Route: 048
     Dates: start: 20100601
  3. ENALAPRIL MALEATE [Concomitant]
     Dosage: 2.5 MG
     Route: 048
     Dates: start: 20110601
  4. EPLERENONE [Concomitant]
     Dosage: 25 MG
     Route: 048
     Dates: start: 20110601
  5. PRADAXA [Suspect]
     Dosage: 220 MG
     Route: 048
     Dates: start: 20110601, end: 20110827
  6. URINORM [Concomitant]
     Dosage: 25 MG
     Route: 048
     Dates: start: 20100601
  7. FAMOTIDINE [Concomitant]
     Dosage: 40 MG
     Route: 048
     Dates: start: 20100701
  8. LASIX [Concomitant]
     Dosage: 20 MG
     Route: 048
     Dates: start: 20110801
  9. CARVEDILOL [Concomitant]
     Dosage: 5 MG
     Route: 048
     Dates: start: 20110601

REACTIONS (1)
  - CONJUNCTIVAL HYPERAEMIA [None]
